FAERS Safety Report 10032788 (Version 1)
Quarter: 2014Q1

REPORT INFORMATION
  Report Type: Spontaneous
  Country: CH (occurrence: CH)
  Receive Date: 20140324
  Receipt Date: 20140324
  Transmission Date: 20141002
  Serious: Yes (Hospitalization)
  Sender: FDA-Public Use
  Company Number: CH-ELI_LILLY_AND_COMPANY-CH201403004283

PATIENT
  Age: 70 Year
  Sex: Female

DRUGS (9)
  1. GEMZAR [Suspect]
     Indication: BLADDER CANCER
     Dosage: UNK
     Route: 042
     Dates: start: 20130115
  2. CARBOPLATIN [Suspect]
     Indication: BLADDER CANCER
     Dosage: UNK
     Route: 065
     Dates: start: 20130115
  3. FENTANYL [Suspect]
     Indication: BACK PAIN
     Dosage: 25 UG, EVERY 72 HOURS
     Route: 062
  4. MORPHIN /00036303/ [Suspect]
     Indication: BACK PAIN
     Dosage: UNK
     Route: 048
  5. NOVALGIN                           /06276704/ [Concomitant]
     Dosage: UNK
  6. PANTOZOL                           /01263204/ [Concomitant]
     Dosage: UNK
  7. RAMIPRIL [Concomitant]
     Dosage: UNK
  8. IBUPROFEN [Concomitant]
     Dosage: UNK
  9. MOTILIUM                           /00498201/ [Concomitant]
     Dosage: UNK

REACTIONS (4)
  - Abdominal pain upper [Recovered/Resolved]
  - Constipation [Recovered/Resolved]
  - Decreased appetite [Unknown]
  - Off label use [Unknown]
